FAERS Safety Report 24630890 (Version 1)
Quarter: 2024Q4

REPORT INFORMATION
  Report Type: Spontaneous
  Country: US (occurrence: None)
  Receive Date: 20241115
  Receipt Date: 20241115
  Transmission Date: 20250115
  Serious: Yes (Hospitalization)
  Sender: Public
  Company Number: None

PATIENT
  Age: 52 Year
  Sex: Female

DRUGS (23)
  1. CYCLOSPORINE [Suspect]
     Active Substance: CYCLOSPORINE
     Indication: Lung transplant
     Dosage: 100 MG TWICE A DAY ORAL
     Route: 048
     Dates: start: 20220516
  2. MYCOPHENOLIC ACID [Suspect]
     Active Substance: MYCOPHENOLIC ACID
     Indication: Lung transplant
     Dosage: 250 M TWICE  A DAY ORAL
     Route: 048
     Dates: start: 20240503
  3. Advair Diskus 250/50mcg [Concomitant]
     Dates: start: 20220623, end: 20230719
  4. Atovaquone 750mg/ml [Concomitant]
     Dates: start: 20230713, end: 20240906
  5. AZITHROMYCIN ANHYDROUS [Concomitant]
     Active Substance: AZITHROMYCIN ANHYDROUS
     Dates: start: 20220106, end: 20240916
  6. CARVEDILOL [Concomitant]
     Active Substance: CARVEDILOL
     Dates: start: 20220817
  7. CETIRIZINE [Concomitant]
     Active Substance: CETIRIZINE HYDROCHLORIDE
     Dates: start: 20240530
  8. DOCUSATE [Concomitant]
     Active Substance: DOCUSATE
     Dates: start: 20220503, end: 20240429
  9. FOLIC ACID [Concomitant]
     Active Substance: FOLIC ACID
     Dates: start: 20220324
  10. FUROSEMIDE [Concomitant]
     Active Substance: FUROSEMIDE
     Dates: start: 20220908
  11. GABAPENTIN [Concomitant]
     Active Substance: GABAPENTIN
     Dates: start: 20230713
  12. HYDROXYZINE HYDROCHLORIDE [Concomitant]
     Active Substance: HYDROXYZINE HYDROCHLORIDE
     Dates: start: 20240613, end: 20240806
  13. NORETHINDRONE [Concomitant]
     Active Substance: NORETHINDRONE
     Dates: start: 20221103
  14. PREDNISONE [Concomitant]
     Active Substance: PREDNISONE
     Dates: start: 20220718
  15. Sodium bicarbonate 10 grams [Concomitant]
     Dates: start: 20220623
  16. Torsemide 20 mg [Concomitant]
     Dates: start: 20240613, end: 20240713
  17. Valganciclovir 450 mg [Concomitant]
     Dates: start: 20211229, end: 20240306
  18. VITAMIN B12 [Concomitant]
     Active Substance: CYANOCOBALAMIN
     Dates: start: 20230713, end: 20240614
  19. Vitamin C 250 mg [Concomitant]
     Dates: start: 20230714, end: 20230728
  20. VITAMIN D3 [Concomitant]
     Active Substance: CHOLECALCIFEROL
     Dates: start: 20210903, end: 20240617
  21. VORICONAZOLE [Concomitant]
     Active Substance: VORICONAZOLE
     Dates: start: 20211229, end: 20240129
  22. SEVELAMER CARBONATE [Concomitant]
     Active Substance: SEVELAMER CARBONATE
     Dates: start: 20220617, end: 20240302
  23. Nifedipine 30mg ER [Concomitant]
     Dates: start: 20221103, end: 20241009

REACTIONS (5)
  - Loss of consciousness [None]
  - Dialysis [None]
  - PCO2 increased [None]
  - Wrong technique in device usage process [None]
  - Lung transplant rejection [None]

NARRATIVE: CASE EVENT DATE: 20241024
